FAERS Safety Report 24566059 (Version 1)
Quarter: 2024Q4

REPORT INFORMATION
  Report Type: Report from Study
  Country: US (occurrence: US)
  Receive Date: 20241030
  Receipt Date: 20241030
  Transmission Date: 20250114
  Serious: Yes (Hospitalization, Other)
  Sender: ABBVIE
  Company Number: US-ABBVIE-5982288

PATIENT
  Age: 61 Year
  Sex: Female

DRUGS (2)
  1. CREON [Suspect]
     Active Substance: PANCRELIPASE AMYLASE\PANCRELIPASE LIPASE\PANCRELIPASE PROTEASE
     Indication: Product used for unknown indication
     Route: 048
     Dates: start: 20230903, end: 20240701
  2. CREON [Suspect]
     Active Substance: PANCRELIPASE AMYLASE\PANCRELIPASE LIPASE\PANCRELIPASE PROTEASE
     Indication: Product used for unknown indication
     Dosage: FIRST ADMIN DATE: 2024
     Route: 048
     Dates: end: 20241001

REACTIONS (4)
  - Liver transplant [Unknown]
  - Diarrhoea [Unknown]
  - Renal impairment [Unknown]
  - Therapy cessation [Unknown]

NARRATIVE: CASE EVENT DATE: 20231201
